FAERS Safety Report 4732725-2 (Version None)
Quarter: 2005Q3

REPORT INFORMATION
  Report Type: 
  Country: None (occurrence: None)
  Receive Date: 20050801
  Receipt Date: 20050801
  Transmission Date: 20060218
  Serious: Yes (Hospitalization)
  Sender: FDA-Public Use
  Company Number: None

PATIENT
  Age: 82 Year
  Sex: Female
  Weight: 62.1428 kg

DRUGS (1)
  1. LITHIUM      3.75 [Suspect]
     Indication: BIPOLAR DISORDER
     Dosage: 1    BEDTIME
     Dates: start: 20040701, end: 20050228

REACTIONS (1)
  - BLOOD CREATININE INCREASED [None]
